FAERS Safety Report 7503910-1 (Version None)
Quarter: 2011Q2

REPORT INFORMATION
  Report Type: 
  Country: None (occurrence: None)
  Receive Date: 20110525
  Receipt Date: 20110209
  Transmission Date: 20111010
  Serious: No
  Sender: FDA-Public Use
  Company Number: US-BAYER-2011-014079

PATIENT
  Age: 32 Year
  Sex: Female

DRUGS (1)
  1. MIRENA [Suspect]
     Indication: CONTRACEPTION
     Dosage: CONTINUOUSLY
     Route: 015
     Dates: start: 20100714, end: 20100802

REACTIONS (11)
  - VAGINAL HAEMORRHAGE [None]
  - UTERINE SPASM [None]
  - STRESS [None]
  - PELVIC INFECTION [None]
  - PYREXIA [None]
  - PATIENT-DEVICE INCOMPATIBILITY [None]
  - CHILLS [None]
  - HYPERTENSION [None]
  - BACK PAIN [None]
  - ABDOMINAL PAIN [None]
  - HORMONE LEVEL ABNORMAL [None]
